FAERS Safety Report 11004355 (Version 1)
Quarter: 2015Q2

REPORT INFORMATION
  Report Type: Spontaneous
  Country: US (occurrence: US)
  Receive Date: 20150409
  Receipt Date: 20150409
  Transmission Date: 20150821
  Serious: Yes (Death, Other)
  Sender: FDA-Public Use
  Company Number: US-ASTRAZENECA-2014SE60017

PATIENT
  Age: 839 Month
  Sex: Male

DRUGS (17)
  1. ACTOPLUS MET [Concomitant]
     Active Substance: METFORMIN HYDROCHLORIDE\PIOGLITAZONE HYDROCHLORIDE
     Dosage: 15-150 MG TAB
     Dates: start: 20110622
  2. PACERONE [Concomitant]
     Active Substance: AMIODARONE HYDROCHLORIDE
     Dosage: TAKE 1 TABLET BY MOUTH 2 (TWO) TIMES DAILY
     Dates: start: 20120727
  3. CRESTOR [Concomitant]
     Active Substance: ROSUVASTATIN CALCIUM
     Route: 048
     Dates: start: 20120104
  4. CARDIZEM CD [Concomitant]
     Active Substance: DILTIAZEM HYDROCHLORIDE
     Dosage: TAKE 1 CAPSULE BY MOUTH DAILY
     Dates: start: 20120727
  5. LISINOPRIL. [Concomitant]
     Active Substance: LISINOPRIL
     Route: 048
     Dates: start: 20120104
  6. BYETTA [Suspect]
     Active Substance: EXENATIDE
     Dosage: PEN 2.4 ML
     Route: 065
     Dates: start: 20100121
  7. VICTOZA [Suspect]
     Active Substance: LIRAGLUTIDE
     Dosage: PEN 3 ML
     Route: 065
     Dates: start: 20110506
  8. VICTOZA [Suspect]
     Active Substance: LIRAGLUTIDE
     Dosage: UNK
     Route: 065
     Dates: start: 201003
  9. PROTONIX [Concomitant]
     Active Substance: PANTOPRAZOLE SODIUM
     Dosage: TAKE 1 TABLET BY MOUTH DAILY
     Dates: start: 20120727
  10. GLUCOSAMINE [Concomitant]
     Active Substance: GLUCOSAMINE
     Route: 065
  11. CARDIZEM [Concomitant]
     Active Substance: DILTIAZEM HYDROCHLORIDE
     Route: 048
  12. ALDACTONE [Concomitant]
     Active Substance: SPIRONOLACTONE
     Route: 048
  13. PROVIGIL [Concomitant]
     Active Substance: MODAFINIL
     Dosage: TAKE 200MG TABLETS EVERY MORNING
     Route: 048
  14. BYETTA [Suspect]
     Active Substance: EXENATIDE
     Dosage: UNK
     Route: 065
     Dates: start: 201001
  15. OSCAL [Concomitant]
     Active Substance: CALCIUM CARBONATE
     Dosage: TAKE 1 TABLET BY MOUTH DAILY
     Dates: start: 20120727
  16. ATENOLOL. [Concomitant]
     Active Substance: ATENOLOL
     Route: 048
  17. ASPIRIN. [Concomitant]
     Active Substance: ASPIRIN
     Route: 048
     Dates: start: 20120104

REACTIONS (5)
  - Bile duct cancer [Unknown]
  - Jaundice cholestatic [Unknown]
  - Pancreatitis acute [Unknown]
  - Pancreatic carcinoma metastatic [Fatal]
  - Cholangiocarcinoma [Unknown]

NARRATIVE: CASE EVENT DATE: 201206
